FAERS Safety Report 16208435 (Version 1)
Quarter: 2019Q2

REPORT INFORMATION
  Report Type: Spontaneous
  Country: US (occurrence: US)
  Receive Date: 20190417
  Receipt Date: 20190417
  Transmission Date: 20190711
  Serious: No
  Sender: FDA-Public Use
  Company Number: US-TEVA-2019-US-1028893

PATIENT
  Sex: Female

DRUGS (4)
  1. BIOTIN [Concomitant]
     Active Substance: BIOTIN
  2. CLARAVIS [Suspect]
     Active Substance: ISOTRETINOIN
     Indication: NODULE
     Dates: start: 201903
  3. PHENTERMINE. [Concomitant]
     Active Substance: PHENTERMINE
  4. COQ10 [Concomitant]
     Active Substance: UBIDECARENONE

REACTIONS (2)
  - Product use in unapproved indication [Unknown]
  - Skin exfoliation [Unknown]

NARRATIVE: CASE EVENT DATE: 20190318
